FAERS Safety Report 19834861 (Version 1)
Quarter: 2021Q3

REPORT INFORMATION
  Report Type: Spontaneous
  Country: US (occurrence: US)
  Receive Date: 20210915
  Receipt Date: 20210915
  Transmission Date: 20211014
  Serious: No
  Sender: FDA-Public Use
  Company Number: US-BAYER-2021-211654

PATIENT
  Age: 77 Year
  Sex: Male

DRUGS (1)
  1. CIPRO [Suspect]
     Active Substance: CIPROFLOXACIN HYDROCHLORIDE
     Dosage: UNK
     Route: 048

REACTIONS (5)
  - Constipation [None]
  - Rash [None]
  - Colitis [None]
  - Diarrhoea [None]
  - Intestinal atony [None]
